FAERS Safety Report 16270491 (Version 3)
Quarter: 2019Q2

REPORT INFORMATION
  Report Type: Report from Study
  Country: CA (occurrence: CA)
  Receive Date: 20190503
  Receipt Date: 20190527
  Transmission Date: 20190711
  Serious: Yes (Other)
  Sender: FDA-Public Use
  Company Number: CA-IPSEN BIOPHARMACEUTICALS, INC.-2019-03944

PATIENT
  Age: 64 Year
  Sex: Female

DRUGS (1)
  1. SOMATULINE AUTOGEL 120MG [Suspect]
     Active Substance: LANREOTIDE ACETATE
     Indication: CARCINOID SYNDROME
     Route: 058
     Dates: start: 20190307

REACTIONS (17)
  - Constipation [Recovering/Resolving]
  - Therapeutic response shortened [Unknown]
  - Myalgia [Recovering/Resolving]
  - Nausea [Not Recovered/Not Resolved]
  - Decreased appetite [Not Recovered/Not Resolved]
  - Haematochezia [Not Recovered/Not Resolved]
  - Carcinoid crisis [Recovering/Resolving]
  - International normalised ratio decreased [Unknown]
  - Weight decreased [Unknown]
  - Memory impairment [Recovered/Resolved]
  - International normalised ratio increased [Unknown]
  - Blood thyroid stimulating hormone decreased [Unknown]
  - Dysphonia [Not Recovered/Not Resolved]
  - Diarrhoea [Unknown]
  - Abdominal pain upper [Recovering/Resolving]
  - Faeces pale [Unknown]
  - Tooth abscess [Recovering/Resolving]

NARRATIVE: CASE EVENT DATE: 20190307
